FAERS Safety Report 17210370 (Version 2)
Quarter: 2020Q1

REPORT INFORMATION
  Report Type: Spontaneous
  Country: CA (occurrence: CA)
  Receive Date: 20191227
  Receipt Date: 20200304
  Transmission Date: 20200409
  Serious: Yes (Other)
  Sender: FDA-Public Use
  Company Number: CA-TAKEDA-2019TUS072806

PATIENT
  Age: 51 Year
  Sex: Male

DRUGS (10)
  1. PENTASA [Suspect]
     Active Substance: MESALAMINE
     Indication: PRODUCT USED FOR UNKNOWN INDICATION
     Dosage: 1 GRAM
     Route: 065
  2. BIFIDOBACTERIUM ANIMALIS SUBSP. LACTIS [Suspect]
     Active Substance: BIFIDOBACTERIUM ANIMALIS LACTIS
     Indication: PRODUCT USED FOR UNKNOWN INDICATION
     Dosage: UNK
     Route: 065
  3. PREDNISONE. [Suspect]
     Active Substance: PREDNISONE
     Indication: PRODUCT USED FOR UNKNOWN INDICATION
     Dosage: 7 MILLIGRAM
     Route: 048
  4. ENTYVIO [Suspect]
     Active Substance: VEDOLIZUMAB
     Indication: PRODUCT USED FOR UNKNOWN INDICATION
     Dosage: UNK
     Route: 065
  5. FENTANYL. [Suspect]
     Active Substance: FENTANYL
     Indication: SEDATION
     Dosage: 100 MICROGRAM
     Route: 065
     Dates: start: 20190328, end: 20190328
  6. MIDAZOLAM HYDROCHLORIDE. [Suspect]
     Active Substance: MIDAZOLAM HYDROCHLORIDE
     Indication: SEDATION
     Dosage: 5 MILLIGRAM
     Route: 065
  7. PENTASA [Suspect]
     Active Substance: MESALAMINE
     Dosage: 1 GRAM
     Route: 065
  8. CALCIUM CARBONATE. [Suspect]
     Active Substance: CALCIUM CARBONATE
     Indication: PRODUCT USED FOR UNKNOWN INDICATION
     Dosage: 600 MILLIGRAM
     Route: 065
  9. HUMIRA [Suspect]
     Active Substance: ADALIMUMAB
     Indication: COLITIS ULCERATIVE
     Dosage: UNK
     Route: 058
  10. VITAMIN D3 [Suspect]
     Active Substance: CHOLECALCIFEROL
     Indication: PRODUCT USED FOR UNKNOWN INDICATION
     Dosage: 4000 INTERNATIONAL UNIT, TID
     Route: 065

REACTIONS (14)
  - Frequent bowel movements [Recovered/Resolved]
  - Adverse drug reaction [Recovered/Resolved]
  - Drug ineffective [Unknown]
  - Lung hyperinflation [Recovered/Resolved]
  - Anorectal discomfort [Recovered/Resolved]
  - Granuloma [Recovered/Resolved]
  - Colitis ulcerative [Recovered/Resolved]
  - Calcinosis [Recovered/Resolved]
  - Colitis [Recovered/Resolved]
  - Mouth ulceration [Recovered/Resolved]
  - Mucous stools [Recovered/Resolved]
  - Dyschezia [Recovered/Resolved]
  - Proctalgia [Recovered/Resolved]
  - Acrochordon [Recovered/Resolved]

NARRATIVE: CASE EVENT DATE: 201903
